FAERS Safety Report 24625358 (Version 1)
Quarter: 2024Q4

REPORT INFORMATION
  Report Type: Spontaneous
  Country: US (occurrence: None)
  Receive Date: 20241115
  Receipt Date: 20241115
  Transmission Date: 20250114
  Serious: No
  Sender: Public
  Company Number: None

PATIENT
  Age: 51 Year
  Sex: Female
  Weight: 84 kg

DRUGS (1)
  1. PHENTERMINE AND TOPIRAMATE [Suspect]
     Active Substance: PHENTERMINE HYDROCHLORIDE\TOPIRAMATE
     Indication: Weight decreased
     Route: 048
     Dates: start: 20240923, end: 20240929

REACTIONS (4)
  - Stevens-Johnson syndrome [None]
  - Trismus [None]
  - Gingival bleeding [None]
  - Weight decreased [None]

NARRATIVE: CASE EVENT DATE: 20240923
